FAERS Safety Report 7835928-3 (Version None)
Quarter: 2011Q4

REPORT INFORMATION
  Report Type: 
  Country: None (occurrence: None)
  Receive Date: 20111024
  Receipt Date: 20110824
  Transmission Date: 20120403
  Serious: No
  Sender: FDA-Public Use
  Company Number: US-ABBOTT-01P-163-0525261-00

PATIENT
  Sex: Female
  Weight: 56.296 kg

DRUGS (6)
  1. LUPRON DEPOT [Suspect]
     Indication: ENDOMETRIOSIS
     Dates: start: 20010501, end: 20010701
  2. MOLD [Suspect]
     Indication: PRODUCT USED FOR UNKNOWN INDICATION
  3. CALCIUM CARBONATE [Concomitant]
     Indication: OSTEOPOROSIS PROPHYLAXIS
     Route: 048
  4. PEPCID AC [Concomitant]
     Indication: OESOPHAGITIS
     Route: 048
  5. COMBINATION FLU SHOT [Suspect]
     Indication: IMMUNISATION
     Dates: start: 20101103, end: 20101103
  6. LUPRON DEPOT [Suspect]
     Indication: ENDOMETRIOSIS
     Route: 030
     Dates: start: 20010808, end: 20010808

REACTIONS (8)
  - VASODILATATION [None]
  - HYPOAESTHESIA [None]
  - ALOPECIA [None]
  - GAIT DISTURBANCE [None]
  - OEDEMA PERIPHERAL [None]
  - PARAESTHESIA [None]
  - MUSCULOSKELETAL STIFFNESS [None]
  - MYALGIA [None]
